FAERS Safety Report 6260811-7 (Version None)
Quarter: 2009Q3

REPORT INFORMATION
  Report Type: 
  Country: None (occurrence: None)
  Receive Date: 20090707
  Receipt Date: 20090622
  Transmission Date: 20100115
  Serious: Yes (Hospitalization)
  Sender: FDA-Public Use
  Company Number: 8048049

PATIENT
  Sex: Male

DRUGS (2)
  1. KEPPRA [Suspect]
     Dosage: 3000 MG
  2. VIMPAT [Suspect]
     Dosage: 100 MG

REACTIONS (2)
  - BRADYCARDIA [None]
  - CONVULSION [None]
